FAERS Safety Report 18604552 (Version 1)
Quarter: 2020Q4

REPORT INFORMATION
  Report Type: Spontaneous
  Country: GB (occurrence: GB)
  Receive Date: 20201211
  Receipt Date: 20201211
  Transmission Date: 20210114
  Serious: Yes (Life-Threatening)
  Sender: FDA-Public Use
  Company Number: GB-ACCORD-210473

PATIENT
  Age: 9 Year
  Sex: Male
  Weight: 18 kg

DRUGS (4)
  1. PREDNISOLONE. [Concomitant]
     Active Substance: PREDNISOLONE
     Dosage: FOR 3 DAYS
     Dates: start: 20200917, end: 20200920
  2. CLENIL MODULITE [Concomitant]
     Active Substance: BECLOMETHASONE DIPROPIONATE
     Dosage: PUFFS
     Route: 055
     Dates: start: 20201012
  3. MONTELUKAST [Suspect]
     Active Substance: MONTELUKAST SODIUM
     Indication: PRODUCT USED FOR UNKNOWN INDICATION
     Dosage: AT NIGHT, SUGAR FREE
     Dates: start: 20201103
  4. SALBUTAMOL [Concomitant]
     Active Substance: ALBUTEROL
     Indication: DYSPNOEA
     Dosage: TAKE ONE OR TWO PUFFS WHEN REQUIRED
     Dates: start: 20201012

REACTIONS (4)
  - Abnormal behaviour [Unknown]
  - Aggression [Unknown]
  - Irritability [Unknown]
  - Anger [Unknown]

NARRATIVE: CASE EVENT DATE: 20201117
